FAERS Safety Report 25326510 (Version 2)
Quarter: 2025Q3

REPORT INFORMATION
  Report Type: Spontaneous
  Country: US (occurrence: US)
  Receive Date: 20250516
  Receipt Date: 20250708
  Transmission Date: 20251021
  Serious: No
  Sender: SANOFI AVENTIS
  Company Number: US-SA-2025SA139780

PATIENT
  Age: 23 Year
  Sex: Female

DRUGS (3)
  1. DUPIXENT [Suspect]
     Active Substance: DUPILUMAB
     Indication: Dermatitis atopic
     Dosage: 300 MG, QOW
     Route: 058
     Dates: start: 20250308, end: 202507
  2. ALCOHOL [Suspect]
     Active Substance: ALCOHOL
     Dates: start: 2025
  3. PHENTERMINE [Concomitant]
     Active Substance: PHENTERMINE

REACTIONS (2)
  - Dermatitis atopic [Unknown]
  - Hypersensitivity [Unknown]

NARRATIVE: CASE EVENT DATE: 20250101
